FAERS Safety Report 5253883-X (Version None)
Quarter: 2007Q1

REPORT INFORMATION
  Report Type: 
  Country: None (occurrence: None)
  Receive Date: 20070227
  Receipt Date: 20070215
  Transmission Date: 20070707
  Serious: Yes (Death)
  Sender: FDA-Public Use
  Company Number: 235537

PATIENT
  Age: 90 Year
  Sex: Female

DRUGS (8)
  1. RANIBIZUMAB(RANIBIZUMAB) PWDR + SOLVENT,INJECTION SOLN [Suspect]
     Indication: MACULAR DEGENERATION
     Dosage: INTRAVITREAL
     Dates: start: 20060110, end: 20060308
  2. METOPROLOL TARTRATE [Concomitant]
  3. ASPIRIN [Concomitant]
  4. LEVOTHYROXINE SODIUM [Concomitant]
  5. ARICEPT [Concomitant]
  6. SEROQUEL [Concomitant]
  7. COLACE (DOCUSATE SODIUM) [Concomitant]
  8. ARMIDEX (ANASTROZOLE) [Concomitant]

REACTIONS (1)
  - CARDIAC FAILURE [None]
